FAERS Safety Report 10065200 (Version 2)
Quarter: 2014Q2

REPORT INFORMATION
  Report Type: Spontaneous
  Country: US (occurrence: US)
  Receive Date: 20140408
  Receipt Date: 20140507
  Transmission Date: 20141212
  Serious: No
  Sender: FDA-Public Use
  Company Number: US-SHIRE-US201401140

PATIENT
  Age: 51 Year
  Sex: Male
  Weight: 90.7 kg

DRUGS (3)
  1. VYVANSE [Suspect]
     Indication: ATTENTION DEFICIT/HYPERACTIVITY DISORDER
     Dosage: 50 MG, 1X/DAY:QD
     Route: 048
     Dates: start: 2013
  2. MORPHINE [Concomitant]
     Indication: BACK PAIN
     Dosage: 30 MG, 3X/DAY:TID
     Route: 048
     Dates: start: 2012
  3. DICLOFENAC [Concomitant]
     Indication: ARTHRITIS
     Dosage: 75 MG, 1X/DAY:QD
     Route: 048
     Dates: start: 201106

REACTIONS (2)
  - Drug ineffective [Not Recovered/Not Resolved]
  - Product quality issue [Not Recovered/Not Resolved]
